FAERS Safety Report 15222051 (Version 1)
Quarter: 2018Q3

REPORT INFORMATION
  Report Type: Spontaneous
  Country: US (occurrence: US)
  Receive Date: 20180705
  Receipt Date: 20180705
  Transmission Date: 20181010
  Serious: Yes (Other)
  Sender: FDA-Public Use
  Company Number: None

PATIENT
  Age: 19 Year
  Sex: Female
  Weight: 61.2 kg

DRUGS (4)
  1. CITRAZINE [Concomitant]
  2. FLUTACONASE [Concomitant]
  3. CIPROFLOXACIN 500MG TAB NDC?55111?0127?01 [Suspect]
     Active Substance: CIPROFLOXACIN
     Indication: URINARY TRACT INFECTION
     Dosage: ?          QUANTITY:1 TABLET(S);?
     Route: 048
     Dates: start: 20180703, end: 20180704
  4. AUBRA [Concomitant]
     Active Substance: ETHINYL ESTRADIOL\LEVONORGESTREL

REACTIONS (11)
  - Hypoaesthesia [None]
  - Headache [None]
  - Pain in extremity [None]
  - Arthralgia [None]
  - Palpitations [None]
  - Pyrexia [None]
  - Myalgia [None]
  - Bone pain [None]
  - Musculoskeletal disorder [None]
  - Musculoskeletal pain [None]
  - Insomnia [None]

NARRATIVE: CASE EVENT DATE: 20180704
